FAERS Safety Report 8117715-4 (Version None)
Quarter: 2012Q1

REPORT INFORMATION
  Report Type: 
  Country: None (occurrence: None)
  Receive Date: 20120203
  Receipt Date: 20120203
  Transmission Date: 20120608
  Serious: No
  Sender: FDA-Public Use
  Company Number: None

PATIENT
  Sex: Male
  Weight: 67 kg

DRUGS (8)
  1. DOXORUBICIN HCL [Suspect]
     Dosage: 47.5 MG
  2. BLEOMYCIN SULFATE [Suspect]
     Dosage: 19 UNIT
  3. DECADRON [Concomitant]
  4. VINBLASTINE SULFATE [Suspect]
     Dosage: 11.5 MG
  5. PERCOCET [Concomitant]
  6. ONDANSETRON HCL [Concomitant]
  7. DACARBAZINE [Suspect]
     Dosage: 710 MG
  8. NEULASTA [Concomitant]

REACTIONS (2)
  - WHITE BLOOD CELL COUNT DECREASED [None]
  - NEUTROPHIL COUNT DECREASED [None]
